FAERS Safety Report 6113045-0 (Version None)
Quarter: 2009Q1

REPORT INFORMATION
  Report Type: 
  Country: None (occurrence: None)
  Receive Date: 20090312
  Receipt Date: 20090306
  Transmission Date: 20090719
  Serious: Yes (Death, Hospitalization, Other)
  Sender: FDA-Public Use
  Company Number: US-WYE-H06099308

PATIENT
  Sex: Female

DRUGS (5)
  1. PREMARIN [Suspect]
  2. MEDROXYPROGESTERONE ACETATE [Suspect]
  3. PREMPRO [Suspect]
  4. PROVERA [Suspect]
  5. ESTRACE [Suspect]

REACTIONS (1)
  - BREAST CANCER [None]
